FAERS Safety Report 12555505 (Version 1)
Quarter: 2016Q3

REPORT INFORMATION
  Report Type: Other
  Country: KR (occurrence: KR)
  Receive Date: 20160714
  Receipt Date: 20160714
  Transmission Date: 20161109
  Serious: Yes (Death, Hospitalization)
  Sender: FDA-Public Use
  Company Number: KR-LUPIN PHARMACEUTICALS INC.-2015-02349

PATIENT
  Age: 33 Year
  Sex: Male

DRUGS (3)
  1. ARIPIPRAZOLE. [Concomitant]
     Active Substance: ARIPIPRAZOLE
     Indication: POST CONCUSSION SYNDROME
     Dosage: 2.5MG
     Route: 065
  2. VALPROIC ACID. [Suspect]
     Active Substance: VALPROIC ACID
     Indication: EPILEPSY
     Dosage: 1200MG
     Route: 065
  3. LAMOTRIGINE. [Suspect]
     Active Substance: LAMOTRIGINE
     Indication: EPILEPSY
     Dosage: 100MG
     Route: 065

REACTIONS (2)
  - Hepatic failure [Fatal]
  - Stevens-Johnson syndrome [Unknown]
